FAERS Safety Report 14243513 (Version 6)
Quarter: 2018Q2

REPORT INFORMATION
  Report Type: Report from Study
  Country: US (occurrence: US)
  Receive Date: 20171201
  Receipt Date: 20180424
  Transmission Date: 20180711
  Serious: Yes (Hospitalization, Other)
  Sender: FDA-Public Use
  Company Number: US-GILEAD-2017-0307910

PATIENT
  Age: 56 Year
  Sex: Female
  Weight: 62.14 kg

DRUGS (3)
  1. SILDENAFIL CITRATE. [Concomitant]
     Active Substance: SILDENAFIL CITRATE
  2. AMBRISENTAN [Suspect]
     Active Substance: AMBRISENTAN
     Indication: CARDIAC VALVE DISEASE
     Dosage: 5 MG, QD
     Route: 065
     Dates: start: 201802
  3. AMBRISENTAN [Suspect]
     Active Substance: AMBRISENTAN
     Indication: PULMONARY HYPERTENSION
     Dosage: 10 MG, QD
     Route: 048
     Dates: start: 20160615

REACTIONS (7)
  - Malaise [Not Recovered/Not Resolved]
  - Wrong technique in product usage process [Not Recovered/Not Resolved]
  - Transplant [Unknown]
  - End stage renal disease [Unknown]
  - Pneumonia [Unknown]
  - Renal transplant [Recovered/Resolved]
  - Nasal congestion [Not Recovered/Not Resolved]
